FAERS Safety Report 24788591 (Version 1)
Quarter: 2024Q4

REPORT INFORMATION
  Report Type: Spontaneous
  Country: JP (occurrence: JP)
  Receive Date: 20241230
  Receipt Date: 20241230
  Transmission Date: 20250114
  Serious: Yes (Other)
  Sender: ALEXION PHARMACEUTICALS
  Company Number: JP-ASTRAZENECA-240144572_063010_P_1

PATIENT

DRUGS (1)
  1. DAPAGLIFLOZIN [Suspect]
     Active Substance: DAPAGLIFLOZIN
     Indication: Cardiac failure chronic
     Dosage: AT NOON

REACTIONS (9)
  - Haematochezia [Unknown]
  - Constipation [Unknown]
  - Musculoskeletal stiffness [Unknown]
  - Nocturia [Unknown]
  - Insomnia [Unknown]
  - Diarrhoea [Unknown]
  - Drug ineffective [Unknown]
  - Back pain [Unknown]
  - Back pain [Unknown]
